FAERS Safety Report 19065855 (Version 1)
Quarter: 2021Q1

REPORT INFORMATION
  Report Type: Spontaneous
  Country: ES (occurrence: ES)
  Receive Date: 20210327
  Receipt Date: 20210327
  Transmission Date: 20210420
  Serious: Yes (Hospitalization, Other)
  Sender: FDA-Public Use
  Company Number: ES-UCBSA-2021013717

PATIENT
  Age: 61 Year
  Sex: Female

DRUGS (3)
  1. LEVETIRACETAM. [Suspect]
     Active Substance: LEVETIRACETAM
     Indication: STATUS EPILEPTICUS
     Dosage: UNKNOWN DOSE
  2. LAMOTRIGINE. [Suspect]
     Active Substance: LAMOTRIGINE
     Indication: STATUS EPILEPTICUS
     Dosage: UNKNOWN DOSE
  3. LEVETIRACETAM. [Suspect]
     Active Substance: LEVETIRACETAM
     Indication: OFF LABEL USE

REACTIONS (4)
  - Postictal psychosis [Unknown]
  - Off label use [Unknown]
  - Suicide attempt [Unknown]
  - Multiple-drug resistance [Unknown]
